FAERS Safety Report 7356498-2 (Version None)
Quarter: 2011Q1

REPORT INFORMATION
  Report Type: 
  Country: None (occurrence: None)
  Receive Date: 20110316
  Receipt Date: 20110311
  Transmission Date: 20110831
  Serious: Yes (Hospitalization)
  Sender: FDA-Public Use
  Company Number: BR-ABBOTT-09P-020-0605501-00

PATIENT
  Sex: Female
  Weight: 69 kg

DRUGS (15)
  1. XALATAN [Concomitant]
     Indication: GLAUCOMA
     Route: 047
  2. ATACAND HCT [Concomitant]
     Indication: HYPERTENSION
     Dosage: 16MG/12.5MG 1 IN 24 HOURS
     Route: 048
  3. ALPHAGAN [Concomitant]
     Indication: GLAUCOMA
     Dosage: DAILY
     Route: 047
  4. LEFLUNOMIDE [Concomitant]
     Indication: RHEUMATOID ARTHRITIS
     Route: 048
  5. AZOPT [Concomitant]
     Indication: GLAUCOMA
     Route: 047
  6. ROHYPNOL [Concomitant]
     Indication: SLEEP DISORDER THERAPY
     Route: 048
  7. RISEDRONATE [Concomitant]
     Indication: BONE DISORDER
     Route: 048
     Dates: start: 20070101
  8. HUMIRA [Suspect]
     Indication: RHEUMATOID ARTHRITIS
     Route: 058
     Dates: start: 20071001
  9. PRELONE [Concomitant]
     Indication: PAIN
     Dosage: 1 OR 1.5 PER DAY
     Route: 048
     Dates: start: 20070101
  10. MARCOUMAR [Concomitant]
     Indication: ANTICOAGULANT THERAPY
     Route: 048
  11. LANITOP [Concomitant]
     Indication: CARDIAC DISORDER
     Route: 048
  12. BRIMONIDINE TARTRATE [Concomitant]
     Indication: GLAUCOMA
     Route: 047
  13. LANITOP [Concomitant]
     Indication: CARDIAC FAILURE
  14. EPIDRAT [Concomitant]
     Indication: DRY SKIN
     Dosage: MOISTURISER
     Route: 061
     Dates: start: 20070101
  15. LEVOTHYROXINE [Concomitant]
     Indication: THYROID DISORDER
     Route: 048
     Dates: start: 20110301

REACTIONS (10)
  - PAIN [None]
  - EYELID DISORDER [None]
  - RHEUMATOID FACTOR NEGATIVE [None]
  - ASTHENIA [None]
  - WEIGHT INCREASED [None]
  - ABASIA [None]
  - BLOOD CREATINE PHOSPHOKINASE ABNORMAL [None]
  - LISTLESS [None]
  - APHAGIA [None]
  - C-REACTIVE PROTEIN ABNORMAL [None]
